FAERS Safety Report 18580032 (Version 1)
Quarter: 2020Q4

REPORT INFORMATION
  Report Type: Spontaneous
  Country: US (occurrence: US)
  Receive Date: 20201204
  Receipt Date: 20201204
  Transmission Date: 20210114
  Serious: Yes (Hospitalization, Other)
  Sender: FDA-Public Use
  Company Number: US-SCIEGEN-2020SCILIT00444

PATIENT
  Age: 12 Year
  Sex: Male

DRUGS (8)
  1. CYPROHEPTADINE. [Suspect]
     Active Substance: CYPROHEPTADINE
     Indication: DECREASED APPETITE
     Dosage: DAILY FOR SIX MONTHS
     Route: 065
  2. ONDANSETRON [Suspect]
     Active Substance: ONDANSETRON
     Indication: PRODUCT USED FOR UNKNOWN INDICATION
     Route: 042
  3. LORAZEPAM. [Interacting]
     Active Substance: LORAZEPAM
     Indication: AGITATION
     Route: 065
  4. CLONIDINE. [Concomitant]
     Active Substance: CLONIDINE
     Indication: PRODUCT USED FOR UNKNOWN INDICATION
     Route: 065
  5. ARIPIPRAZOLE. [Suspect]
     Active Substance: ARIPIPRAZOLE
     Indication: PRODUCT USED FOR UNKNOWN INDICATION
     Dosage: DAILY
     Route: 065
  6. FLUOXETINE [Suspect]
     Active Substance: FLUOXETINE HYDROCHLORIDE
     Dosage: DAILY FOR 2 YEARS
     Route: 065
  7. CLONIDINE. [Concomitant]
     Active Substance: CLONIDINE
     Dosage: DAILY
     Route: 065
  8. AMPHETAMINE/DEXTROAMPHETAMINE [Concomitant]
     Active Substance: AMPHETAMINE\DEXTROAMPHETAMINE
     Indication: PRODUCT USED FOR UNKNOWN INDICATION
     Dosage: DAILY FOR 5 YEARS
     Route: 065

REACTIONS (3)
  - Serotonin syndrome [Recovering/Resolving]
  - Drug interaction [Unknown]
  - Neuroleptic malignant syndrome [Recovering/Resolving]
